FAERS Safety Report 16607939 (Version 4)
Quarter: 2020Q1

REPORT INFORMATION
  Report Type: Spontaneous
  Country: JP (occurrence: JP)
  Receive Date: 20190722
  Receipt Date: 20200109
  Transmission Date: 20200409
  Serious: Yes (Hospitalization, Other)
  Sender: FDA-Public Use
  Company Number: JP-GLAXOSMITHKLINE-JP2019JPN129086

PATIENT
  Age: 77 Year
  Sex: Male
  Weight: 57 kg

DRUGS (1)
  1. ZOVIRAX [Suspect]
     Active Substance: ACYCLOVIR
     Indication: HERPES ZOSTER
     Dosage: 800 MG, QD
     Route: 048
     Dates: start: 201811, end: 2018

REACTIONS (20)
  - Speech disorder [Recovering/Resolving]
  - Mononuclear cell count abnormal [Recovered/Resolved]
  - Hallucination [Recovered/Resolved]
  - Asterixis [Recovered/Resolved]
  - Sensory disturbance [Recovered/Resolved]
  - Blood creatinine increased [Recovered/Resolved]
  - Disorientation [Recovered/Resolved]
  - Vital functions abnormal [Recovered/Resolved]
  - CSF protein increased [Recovered/Resolved]
  - Dysstasia [Unknown]
  - Dyskinesia [Recovered/Resolved]
  - Tremor [Recovered/Resolved]
  - Myoclonus [Recovered/Resolved]
  - Toxic encephalopathy [Recovered/Resolved]
  - Inflammation [Recovered/Resolved]
  - Abnormal behaviour [Unknown]
  - Nephrogenic anaemia [Recovered/Resolved]
  - Herpes zoster meningoencephalitis [Unknown]
  - Hallucination, auditory [Unknown]
  - Altered state of consciousness [Recovered/Resolved]

NARRATIVE: CASE EVENT DATE: 2018
